FAERS Safety Report 5608943-8 (Version None)
Quarter: 2008Q1

REPORT INFORMATION
  Report Type: 
  Country: None (occurrence: None)
  Receive Date: 20080129
  Receipt Date: 20080129
  Transmission Date: 20080703
  Serious: Yes (Other)
  Sender: FDA-Public Use
  Company Number: None

PATIENT
  Sex: Male
  Weight: 63.5036 kg

DRUGS (2)
  1. TAMIFLU [Suspect]
     Indication: INFLUENZA
     Dosage: 75MG  TWICE DAILY  PO (DURATION: ONE 75MG DOSE)
     Route: 048
     Dates: start: 20080124, end: 20080124
  2. TAMIFLU [Suspect]

REACTIONS (4)
  - AMNESIA [None]
  - CONFUSIONAL STATE [None]
  - EYELID OEDEMA [None]
  - SPEECH DISORDER [None]
